FAERS Safety Report 12380587 (Version 10)
Quarter: 2018Q2

REPORT INFORMATION
  Report Type: Spontaneous
  Country: US (occurrence: US)
  Receive Date: 20160518
  Receipt Date: 20180605
  Transmission Date: 20180711
  Serious: Yes (Congenital Anomaly, Other)
  Sender: FDA-Public Use
  Company Number: PHEH2016US012268

PATIENT
  Sex: Male

DRUGS (3)
  1. ONDANSETRON [Suspect]
     Active Substance: ONDANSETRON
     Indication: FOETAL EXPOSURE DURING PREGNANCY
     Dosage: MOTHERS DOSE: 8 MG THREE TIMES A DAY (TID)
     Route: 064
  2. ZOFRAN [Suspect]
     Active Substance: ONDANSETRON HYDROCHLORIDE
     Indication: FOETAL EXPOSURE DURING PREGNANCY
     Dosage: UNK
     Route: 064
  3. ONDANSETRON HYDROCHLORIDE. [Suspect]
     Active Substance: ONDANSETRON HYDROCHLORIDE
     Indication: FOETAL EXPOSURE DURING PREGNANCY
     Route: 064

REACTIONS (27)
  - Congenital oesophageal anomaly [Unknown]
  - Small for dates baby [Unknown]
  - Foetal exposure during pregnancy [Unknown]
  - Anhedonia [Unknown]
  - Gastroenteritis [Unknown]
  - Congenital anomaly [Unknown]
  - Pectus excavatum [Unknown]
  - Body fat disorder [Unknown]
  - Jaundice neonatal [Unknown]
  - Injury [Unknown]
  - Anaemia neonatal [Unknown]
  - Deafness [Unknown]
  - Developmental delay [Unknown]
  - Hypernatraemia [Unknown]
  - Cryptorchism [Unknown]
  - Decreased immune responsiveness [Unknown]
  - Premature baby [Unknown]
  - Hernia [Unknown]
  - Dyspnoea [Unknown]
  - Head deformity [Unknown]
  - Gastrooesophageal reflux disease [Unknown]
  - Hypotonia neonatal [Unknown]
  - Hyperbilirubinaemia neonatal [Unknown]
  - Dehydration [Unknown]
  - Anxiety [Unknown]
  - Pain [Unknown]
  - Weight decrease neonatal [Unknown]
